FAERS Safety Report 16302012 (Version 1)
Quarter: 2019Q2

REPORT INFORMATION
  Report Type: Spontaneous
  Country: US (occurrence: US)
  Receive Date: 20190512
  Receipt Date: 20190512
  Transmission Date: 20190711
  Serious: Yes (Other)
  Sender: FDA-Public Use
  Company Number: US-JNJFOC-20190437502

PATIENT
  Sex: Male
  Weight: 71.67 kg

DRUGS (1)
  1. ERLEADA [Suspect]
     Active Substance: APALUTAMIDE
     Indication: PROSTATE CANCER
     Route: 048
     Dates: start: 20180802

REACTIONS (3)
  - Affect lability [Unknown]
  - Fatigue [Unknown]
  - Prostatic specific antigen increased [Unknown]
